FAERS Safety Report 15121112 (Version 2)
Quarter: 2019Q1

REPORT INFORMATION
  Report Type: Spontaneous
  Country: US (occurrence: US)
  Receive Date: 20180709
  Receipt Date: 20190122
  Transmission Date: 20190417
  Serious: Yes (Other)
  Sender: FDA-Public Use
  Company Number: US-SA-2018SA181710

PATIENT
  Sex: Female

DRUGS (5)
  1. TAXOTERE [Suspect]
     Active Substance: DOCETAXEL
     Dosage: UNK
     Route: 042
     Dates: start: 20090427, end: 20090427
  2. TAXOTERE [Suspect]
     Active Substance: DOCETAXEL
     Indication: BREAST CANCER FEMALE
     Dosage: UNK UNK, UNK
     Route: 042
     Dates: start: 20090406, end: 20090406
  3. CYTOXAN [Concomitant]
     Active Substance: CYCLOPHOSPHAMIDE
     Dosage: 150 MG, UNK
     Route: 065
     Dates: start: 20090406, end: 20090406
  4. CYTOXAN [Concomitant]
     Active Substance: CYCLOPHOSPHAMIDE
     Dosage: 150 MG, UNK
     Route: 065
     Dates: start: 20090427, end: 20090427
  5. NEULASTA [Concomitant]
     Active Substance: PEGFILGRASTIM

REACTIONS (1)
  - Alopecia [Not Recovered/Not Resolved]
